FAERS Safety Report 11846983 (Version 1)
Quarter: 2015Q4

REPORT INFORMATION
  Report Type: Spontaneous
  Country: US (occurrence: US)
  Receive Date: 20151217
  Receipt Date: 20151217
  Transmission Date: 20160305
  Serious: No
  Sender: FDA-Public Use
  Company Number: US-ROCHE-1516843

PATIENT
  Age: 78 Year
  Sex: Male

DRUGS (6)
  1. LEVOTHYROXINE. [Concomitant]
     Active Substance: LEVOTHYROXINE
  2. FLEXERIL [Concomitant]
     Active Substance: CYCLOBENZAPRINE HYDROCHLORIDE
  3. TAMIFLU [Suspect]
     Active Substance: OSELTAMIVIR PHOSPHATE
     Indication: INFLUENZA
     Route: 065
     Dates: start: 20141229
  4. TRAZODONE [Concomitant]
     Active Substance: TRAZODONE HYDROCHLORIDE
     Indication: SLEEP DISORDER
  5. ENALAPRIL [Concomitant]
     Active Substance: ENALAPRIL
     Indication: BLOOD PRESSURE MEASUREMENT
  6. TRAMADOL. [Concomitant]
     Active Substance: TRAMADOL
     Indication: PAIN

REACTIONS (11)
  - Asthenia [Unknown]
  - Hypertension [Unknown]
  - Muscle spasms [Unknown]
  - Chest discomfort [Recovered/Resolved]
  - Pain [Unknown]
  - Nausea [Unknown]
  - Fall [Unknown]
  - Myalgia [Unknown]
  - Tremor [Unknown]
  - Chills [Unknown]
  - Dyskinesia [Unknown]

NARRATIVE: CASE EVENT DATE: 20141230
